FAERS Safety Report 11322213 (Version 1)
Quarter: 2015Q3

REPORT INFORMATION
  Report Type: Spontaneous
  Country: US (occurrence: US)
  Receive Date: 20150729
  Receipt Date: 20150729
  Transmission Date: 20151125
  Serious: No
  Sender: FDA-Public Use
  Company Number: US-AMGEN-USASP2015074208

PATIENT
  Age: 53 Year
  Sex: Female

DRUGS (1)
  1. ENBREL [Suspect]
     Active Substance: ETANERCEPT
     Indication: PSORIATIC ARTHROPATHY
     Dosage: 50 MG, QWK
     Route: 065
     Dates: start: 2012

REACTIONS (13)
  - Pain in extremity [Unknown]
  - Musculoskeletal pain [Unknown]
  - Ligament sprain [Unknown]
  - Cast application [Unknown]
  - Gastroenteritis viral [Unknown]
  - Vomiting [Unknown]
  - Injection site pain [Unknown]
  - Feeding disorder [Unknown]
  - Condition aggravated [Unknown]
  - Arthralgia [Unknown]
  - Nausea [Unknown]
  - Diarrhoea [Unknown]
  - Injection site bruising [Unknown]

NARRATIVE: CASE EVENT DATE: 20150609
